FAERS Safety Report 5369481-3 (Version None)
Quarter: 2007Q2

REPORT INFORMATION
  Report Type: 
  Country: None (occurrence: None)
  Receive Date: 20070621
  Receipt Date: 20070606
  Transmission Date: 20071010
  Serious: Yes (Hospitalization)
  Sender: FDA-Public Use
  Company Number: POMP-11082

PATIENT
  Age: 7 Month
  Sex: Male
  Weight: 7.6 kg

DRUGS (3)
  1. MYOZYME [Suspect]
     Indication: GLYCOGEN STORAGE DISEASE TYPE II
     Dosage: 20 MG/KG Q2WKS IV
     Route: 042
     Dates: start: 20070419
  2. UNASYN [Concomitant]
  3. FENTANYL [Concomitant]

REACTIONS (16)
  - ANAEMIA [None]
  - ATELECTASIS [None]
  - BLOOD CULTURE POSITIVE [None]
  - CARDIAC FAILURE ACUTE [None]
  - CONDITION AGGRAVATED [None]
  - DILATATION VENTRICULAR [None]
  - HEART RATE DECREASED [None]
  - INCORRECT DRUG ADMINISTRATION DURATION [None]
  - LUNG INFILTRATION [None]
  - OXYGEN SATURATION DECREASED [None]
  - RASH ERYTHEMATOUS [None]
  - RESPIRATORY DISTRESS [None]
  - RESPIRATORY FAILURE [None]
  - STAPHYLOCOCCAL INFECTION [None]
  - URTICARIA [None]
  - VENTRICULAR HYPERTROPHY [None]
